FAERS Safety Report 8279228-9 (Version None)
Quarter: 2012Q2

REPORT INFORMATION
  Report Type: 
  Country: None (occurrence: None)
  Receive Date: 20120412
  Receipt Date: 20110413
  Transmission Date: 20120825
  Serious: No
  Sender: FDA-Public Use
  Company Number: US-ASTRAZENECA-2011SE21932

PATIENT
  Sex: Female

DRUGS (3)
  1. ALPRAZOLAM [Suspect]
  2. NEXIUM [Suspect]
     Route: 048
  3. PAROXETINE [Suspect]

REACTIONS (6)
  - LIGAMENT SPRAIN [None]
  - DEPRESSION [None]
  - VITAMIN D DEFICIENCY [None]
  - ANXIETY DISORDER [None]
  - MUSCLE STRAIN [None]
  - GASTROOESOPHAGEAL REFLUX DISEASE [None]
